FAERS Safety Report 10576948 (Version 1)
Quarter: 2014Q4

REPORT INFORMATION
  Report Type: Spontaneous
  Country: US (occurrence: US)
  Receive Date: 20141111
  Receipt Date: 20141111
  Transmission Date: 20150529
  Serious: Yes (Hospitalization, Other)
  Sender: FDA-Public Use
  Company Number: US-PFIZER INC-2014308342

PATIENT
  Age: 80 Year
  Sex: Female

DRUGS (2)
  1. NAPROXEN SODIUM. [Suspect]
     Active Substance: NAPROXEN SODIUM
     Dosage: UNK
  2. CELEBREX [Suspect]
     Active Substance: CELECOXIB
     Dosage: UNK
     Dates: start: 201410

REACTIONS (4)
  - Lower limb fracture [Unknown]
  - Cardiac valve disease [Recovering/Resolving]
  - Cardiac failure [Unknown]
  - Arthritis [Unknown]

NARRATIVE: CASE EVENT DATE: 201409
